FAERS Safety Report 17418878 (Version 2)
Quarter: 2020Q1

REPORT INFORMATION
  Report Type: Report from Study
  Country: HU (occurrence: HU)
  Receive Date: 20200214
  Receipt Date: 20200221
  Transmission Date: 20200409
  Serious: Yes (Hospitalization)
  Sender: FDA-Public Use
  Company Number: HU-TAIHO ONCOLOGY  INC-IM-2020-00205

PATIENT
  Age: 62 Year
  Sex: Female
  Weight: 62 kg

DRUGS (12)
  1. ADIMET [Concomitant]
     Indication: TYPE 2 DIABETES MELLITUS
     Dosage: 1000 MG, BID
     Route: 048
     Dates: start: 2017
  2. BETALOC [Concomitant]
     Active Substance: METOPROLOL TARTRATE
     Indication: DYSPNOEA
     Dosage: 25 MG, BID
     Route: 048
     Dates: start: 20200102
  3. BEVACIZUMAB. [Suspect]
     Active Substance: BEVACIZUMAB
     Indication: COLORECTAL CANCER METASTATIC
     Dosage: 310 MG (5 MG/KG) ON DAY 1 AND 15 OF EACH 28 DAY CYCLE
     Route: 042
     Dates: start: 20191015, end: 20191223
  4. CLEXANE [Concomitant]
     Active Substance: ENOXAPARIN SODIUM
     Indication: DYSPNOEA
     Dosage: 0.4 ML, QD
     Route: 051
     Dates: start: 20200102
  5. CONTRAMAL [Concomitant]
     Active Substance: TRAMADOL HYDROCHLORIDE
     Indication: PAIN IN EXTREMITY
     Dosage: 50 MG, TID
     Route: 048
     Dates: start: 20200102
  6. MALTOFER [Concomitant]
  7. LONSURF [Suspect]
     Active Substance: TIPIRACIL HYDROCHLORIDE\TRIFLURIDINE
     Indication: COLORECTAL CANCER METASTATIC
     Dosage: 55 MG (35 MG/M2) BID, ON DAYS 1-5 AND 8-12 OF EACH 28-DAY CYCLE
     Route: 048
     Dates: start: 20191015, end: 20191221
  8. BEVACIZUMAB. [Suspect]
     Active Substance: BEVACIZUMAB
     Dosage: 300 MG (5 MG/KG) ON DAY 1 AND 15 OF EACH 28 DAY CYCLE
     Route: 042
     Dates: start: 20200114, end: 20200114
  9. VEROSPIRON [Concomitant]
     Active Substance: SPIRONOLACTONE
     Indication: OEDEMA
  10. LONSURF [Suspect]
     Active Substance: TIPIRACIL HYDROCHLORIDE\TRIFLURIDINE
     Dosage: 55 MG (35 MG/M2) BID, ON DAYS 1-5 AND 8-12 OF EACH 28-DAY CYCLE
     Route: 048
     Dates: start: 20200114, end: 20200125
  11. DIONIN [Concomitant]
     Indication: DYSPNOEA
     Dosage: 30 GTT, QD
     Route: 048
     Dates: start: 20200102
  12. VEROSPIRON [Concomitant]
     Active Substance: SPIRONOLACTONE
     Indication: ASCITES
     Dosage: 25 MG, TID
     Route: 048
     Dates: start: 20200128

REACTIONS (1)
  - Cardiac failure [Not Recovered/Not Resolved]

NARRATIVE: CASE EVENT DATE: 20200203
